FAERS Safety Report 5159093-9 (Version None)
Quarter: 2006Q4

REPORT INFORMATION
  Report Type: 
  Country: None (occurrence: None)
  Receive Date: 20061128
  Receipt Date: 20041210
  Transmission Date: 20070319
  Serious: Yes (Death)
  Sender: FDA-Public Use
  Company Number: DE-BOEHRINGER INGELHEIM PHARMACEUTICALS, INC.-2006-DE-06285DE

PATIENT
  Sex: Female

DRUGS (3)
  1. MICARDIS HCT [Suspect]
     Indication: ESSENTIAL HYPERTENSION
     Dates: start: 20040615
  2. DIURETICS [Concomitant]
     Indication: HYPERTENSION
  3. ACE-INHIBITOR [Concomitant]
     Indication: HYPERTENSION

REACTIONS (1)
  - DEATH [None]
